FAERS Safety Report 19368259 (Version 1)
Quarter: 2021Q2

REPORT INFORMATION
  Report Type: Spontaneous
  Country: US (occurrence: US)
  Receive Date: 20210603
  Receipt Date: 20210603
  Transmission Date: 20210717
  Serious: Yes (Other)
  Sender: FDA-Public Use
  Company Number: US-ROCHE-2841978

PATIENT

DRUGS (1)
  1. ACTEMRA [Suspect]
     Active Substance: TOCILIZUMAB
     Indication: RHEUMATOID ARTHRITIS
     Route: 058
     Dates: start: 20191209

REACTIONS (5)
  - Breast cancer [Unknown]
  - Fatigue [Unknown]
  - Peripheral swelling [Unknown]
  - Somnolence [Unknown]
  - Insomnia [Unknown]
